FAERS Safety Report 9242408 (Version 1)
Quarter: 2013Q2

REPORT INFORMATION
  Report Type: Spontaneous
  Country: US (occurrence: US)
  Receive Date: 20130419
  Receipt Date: 20130419
  Transmission Date: 20140414
  Serious: No
  Sender: FDA-Public Use
  Company Number: US-PFIZER INC-2013124513

PATIENT
  Sex: Female

DRUGS (2)
  1. GABAPENTIN [Suspect]
     Indication: BACK PAIN
     Dosage: UNK
  2. KEPPRA [Suspect]
     Dosage: UNK

REACTIONS (3)
  - Malaise [Unknown]
  - Nausea [Unknown]
  - Irritability [Unknown]
